FAERS Safety Report 20811700 (Version 2)
Quarter: 2022Q2

REPORT INFORMATION
  Report Type: Report from Study
  Country: DE (occurrence: DE)
  Receive Date: 20220510
  Receipt Date: 20220520
  Transmission Date: 20220720
  Serious: Yes (Life-Threatening, Hospitalization)
  Sender: FDA-Public Use
  Company Number: DE-SUN PHARMACEUTICAL INDUSTRIES LTD-2022RR-336237

PATIENT
  Age: 45 Year
  Sex: Male
  Weight: 98 kg

DRUGS (7)
  1. TILDRAKIZUMAB [Suspect]
     Active Substance: TILDRAKIZUMAB
     Indication: Psoriasis
     Dosage: 100 MILLIGRAM, FIRST INJECTION
     Route: 058
     Dates: start: 20211222
  2. TILDRAKIZUMAB [Suspect]
     Active Substance: TILDRAKIZUMAB
     Dosage: 100 MILLIGRAM, SECOND INJECTION
     Route: 058
     Dates: start: 20220119
  3. CANDESARTAN [Concomitant]
     Active Substance: CANDESARTAN
     Indication: Hypertension
     Dosage: 16 MILLIGRAM, UNK
     Route: 048
     Dates: start: 2018
  4. ASPIRIN [Concomitant]
     Active Substance: ASPIRIN
     Indication: Platelet aggregation inhibition
     Dosage: 100 MILLIGRAM, UNK
     Route: 048
     Dates: start: 20220312
  5. CLOPIDOGREL [Concomitant]
     Active Substance: CLOPIDOGREL BISULFATE
     Indication: Platelet aggregation inhibition
     Dosage: 75 MILLIGRAM, UNK
     Route: 048
     Dates: start: 20220312
  6. ATORVASTATIN [Concomitant]
     Active Substance: ATORVASTATIN
     Indication: Blood cholesterol increased
     Dosage: 20 MILLIGRAM, UNK
     Route: 048
     Dates: start: 20220312
  7. HULIO [Concomitant]
     Active Substance: ADALIMUMAB-FKJP
     Indication: Psoriasis
     Dosage: UNK
     Route: 065
     Dates: start: 20210907, end: 20211215

REACTIONS (1)
  - Cerebrovascular accident [Recovered/Resolved]

NARRATIVE: CASE EVENT DATE: 20220312
